FAERS Safety Report 8721167 (Version 4)
Quarter: 2013Q1

REPORT INFORMATION
  Report Type: Spontaneous
  Country: US (occurrence: US)
  Receive Date: 20120813
  Receipt Date: 20130315
  Transmission Date: 20140127
  Serious: Yes (Other)
  Sender: FDA-Public Use
  Company Number: US-PFIZER INC-2012193760

PATIENT
  Age: 81 Year
  Sex: Female
  Weight: 77.1 kg

DRUGS (19)
  1. LYRICA [Suspect]
     Indication: CARPAL TUNNEL SYNDROME
     Dosage: 50 MG, 3X/DAY
     Route: 048
     Dates: start: 20120413
  2. LYRICA [Suspect]
     Indication: NEURALGIA
     Dosage: UNK, 2X/DAY
     Route: 048
     Dates: start: 2012
  3. LYRICA [Suspect]
     Indication: NEURALGIA
  4. ROPINIROLE [Concomitant]
     Dosage: 1 MG, 1X/DAY
  5. ENABLEX [Concomitant]
     Dosage: 50 MG, 1X/DAY
  6. PANTOPRAZOLE [Concomitant]
     Dosage: 40 MG, 1X/DAY
  7. ATENOLOL [Concomitant]
     Dosage: 50 MG, 1X/DAY
  8. ASPIRIN [Concomitant]
     Dosage: 81 MG, 1X/DAY
  9. TYLENOL [Concomitant]
     Dosage: UNK
  10. CEPHULAC [Concomitant]
     Dosage: UNK
  11. LOPRESSOR [Concomitant]
     Dosage: UNK
  12. PROTONIX [Concomitant]
     Dosage: UNK
  13. SENOKOT [Concomitant]
     Dosage: UNK
  14. COUMADINE [Concomitant]
     Dosage: UNK
  15. DULCOLAX [Concomitant]
     Dosage: UNK
  16. GABAPENTIN [Concomitant]
     Dosage: UNK
  17. PLAQUENIL [Concomitant]
     Dosage: UNK
  18. REQUIP [Concomitant]
     Dosage: UNK
     Dates: end: 20120817
  19. OXYCODONE [Concomitant]
     Dosage: UNK, AS NEEDED

REACTIONS (4)
  - Transient ischaemic attack [Recovered/Resolved]
  - Drug administration error [Unknown]
  - Paraesthesia [Not Recovered/Not Resolved]
  - Hypoaesthesia [Not Recovered/Not Resolved]
